FAERS Safety Report 5849016-9 (Version None)
Quarter: 2008Q3

REPORT INFORMATION
  Report Type: 
  Country: None (occurrence: None)
  Receive Date: 20080819
  Receipt Date: 20080806
  Transmission Date: 20090109
  Serious: Yes (Hospitalization, Other)
  Sender: FDA-Public Use
  Company Number: US-BAYER-200823888NA

PATIENT
  Age: 40 Year
  Sex: Female
  Weight: 108 kg

DRUGS (2)
  1. BETASERON [Suspect]
     Indication: MULTIPLE SCLEROSIS
     Dosage: TOTAL DAILY DOSE: 8 MIU
     Route: 058
  2. AVONEX [Concomitant]

REACTIONS (3)
  - ABSCESS LIMB [None]
  - LIPOATROPHY [None]
  - SWELLING [None]
